FAERS Safety Report 7798968-9 (Version None)
Quarter: 2011Q4

REPORT INFORMATION
  Report Type: 
  Country: None (occurrence: None)
  Receive Date: 20111006
  Receipt Date: 20110928
  Transmission Date: 20120403
  Serious: Yes (Other)
  Sender: FDA-Public Use
  Company Number: JP-ASTELLAS-2011JP006892

PATIENT
  Age: 61 Year
  Sex: Male

DRUGS (9)
  1. MERPHALAN [Concomitant]
     Route: 065
  2. CARBOPLATIN [Concomitant]
     Route: 065
  3. CYTARABINE [Concomitant]
     Route: 065
  4. PROGRAF [Suspect]
     Indication: IMMUNOSUPPRESSANT DRUG THERAPY
     Route: 065
  5. METHOTREXATE [Concomitant]
     Indication: IMMUNOSUPPRESSANT DRUG THERAPY
     Route: 065
  6. ETOPOSIDE [Concomitant]
     Route: 065
  7. RITUXIMAB [Concomitant]
     Route: 065
  8. IFOSFAMIDE [Concomitant]
     Route: 065
  9. RANIMUSTINE [Concomitant]
     Route: 065

REACTIONS (2)
  - ACUTE GRAFT VERSUS HOST DISEASE [None]
  - DRUG INEFFECTIVE [None]
